FAERS Safety Report 24857696 (Version 2)
Quarter: 2025Q1

REPORT INFORMATION
  Report Type: Report from Study
  Country: BE (occurrence: BE)
  Receive Date: 20250117
  Receipt Date: 20250217
  Transmission Date: 20250409
  Serious: Yes (Other)
  Sender: CSL BEHRING
  Company Number: BE-BEH-2025191950

PATIENT
  Sex: Female
  Weight: 77 kg

DRUGS (2)
  1. HIZENTRA [Suspect]
     Active Substance: HUMAN IMMUNOGLOBULIN G
     Indication: Primary immunodeficiency syndrome
     Route: 065
     Dates: start: 20250101
  2. HIZENTRA [Suspect]
     Active Substance: HUMAN IMMUNOGLOBULIN G
     Indication: Secondary immunodeficiency
     Dosage: 8 G/40ML, ONCE PER WEEK
     Route: 058

REACTIONS (2)
  - Pneumonia [Unknown]
  - Cough [Unknown]
